FAERS Safety Report 4849481-X (Version None)
Quarter: 2005Q4

REPORT INFORMATION
  Report Type: 
  Country: None (occurrence: None)
  Receive Date: 20051207
  Receipt Date: 20051124
  Transmission Date: 20060501
  Serious: Yes (Disabling)
  Sender: FDA-Public Use
  Company Number: 2005161761

PATIENT
  Age: 52 Year
  Sex: Female

DRUGS (3)
  1. ZIPRASIDONE HCL [Suspect]
     Indication: PSYCHOTIC DISORDER
     Dosage: 80 MG (40 MG, 2 IN 1 D), ORAL
     Route: 048
     Dates: start: 20041103, end: 20050601
  2. ESCITALOPRAM (ESCITALOPRAM) [Concomitant]
  3. OXAZEPAM [Concomitant]

REACTIONS (6)
  - DROOLING [None]
  - GRIMACING [None]
  - MUSCULOSKELETAL STIFFNESS [None]
  - SPEECH DISORDER [None]
  - TENSION [None]
  - TIC [None]
